FAERS Safety Report 4269819-4 (Version None)
Quarter: 2004Q1

REPORT INFORMATION
  Report Type: 
  Country: None (occurrence: None)
  Receive Date: 20040112
  Receipt Date: 20031229
  Transmission Date: 20041129
  Serious: Yes (Death)
  Sender: FDA-Public Use
  Company Number: DSA_70139_2003

PATIENT
  Age: 77 Year
  Sex: Male
  Weight: 77.1115 kg

DRUGS (1)
  1. DARVOCET-N 100 [Suspect]
     Indication: PAIN
     Dosage: 2 TAB ONCE PO
     Route: 048
     Dates: start: 20030811, end: 20030811

REACTIONS (7)
  - CEREBROVASCULAR ACCIDENT [None]
  - EATING DISORDER [None]
  - EMBOLISM [None]
  - HYPOAESTHESIA [None]
  - SPEECH DISORDER [None]
  - SWOLLEN TONGUE [None]
  - THROMBOSIS [None]
